FAERS Safety Report 24538181 (Version 1)
Quarter: 2024Q4

REPORT INFORMATION
  Report Type: Spontaneous
  Country: RU (occurrence: RU)
  Receive Date: 20241023
  Receipt Date: 20241023
  Transmission Date: 20250115
  Serious: Yes (Hospitalization)
  Sender: ABBVIE
  Company Number: RU-ABBVIE-5972645

PATIENT
  Age: 16 Year
  Sex: Female
  Weight: 37 kg

DRUGS (3)
  1. HUMIRA [Suspect]
     Active Substance: ADALIMUMAB
     Indication: Crohn^s disease
     Route: 058
     Dates: start: 2022, end: 20230109
  2. HUMIRA [Suspect]
     Active Substance: ADALIMUMAB
     Route: 058
     Dates: start: 20210429
  3. PENTASA [Concomitant]
     Active Substance: MESALAMINE
     Indication: Crohn^s disease
     Dosage: FREQUENCY:- 0.5 DAYS.
     Route: 048

REACTIONS (3)
  - Abscess [Recovered/Resolved]
  - Pelvic abscess [Unknown]
  - Vulval abscess [Unknown]

NARRATIVE: CASE EVENT DATE: 20220801
